FAERS Safety Report 16083522 (Version 2)
Quarter: 2019Q4

REPORT INFORMATION
  Report Type: Spontaneous
  Country: US (occurrence: US)
  Receive Date: 20190318
  Receipt Date: 20191113
  Transmission Date: 20200122
  Serious: Yes (Other)
  Sender: FDA-Public Use
  Company Number: US-BRISTOL-MYERS SQUIBB COMPANY-BMS-2019-023906

PATIENT
  Age: 67 Year
  Sex: Male

DRUGS (2)
  1. PRO-STATIN [Concomitant]
     Indication: PRODUCT USED FOR UNKNOWN INDICATION
     Route: 065
  2. SPRYCEL [Suspect]
     Active Substance: DASATINIB
     Indication: CHRONIC MYELOID LEUKAEMIA
     Dosage: 100 MILLIGRAM, QD
     Route: 048

REACTIONS (4)
  - Pulmonary oedema [Recovering/Resolving]
  - Muscle disorder [Recovering/Resolving]
  - Dysphagia [Unknown]
  - Productive cough [Unknown]

NARRATIVE: CASE EVENT DATE: 20191104
